FAERS Safety Report 6815761-1 (Version None)
Quarter: 2010Q3

REPORT INFORMATION
  Report Type: 
  Country: None (occurrence: None)
  Receive Date: 20100704
  Receipt Date: 20100621
  Transmission Date: 20110219
  Serious: Yes (Hospitalization)
  Sender: FDA-Public Use
  Company Number: GB-BAUSCH-2010BL002931

PATIENT
  Age: 46 Year
  Sex: Male
  Weight: 82 kg

DRUGS (3)
  1. TROPICAMIDE [Suspect]
     Indication: OPHTHALMOLOGICAL EXAMINATION
     Route: 047
     Dates: start: 20100430, end: 20100430
  2. VENTOLIN [Suspect]
     Indication: DYSPNOEA
     Dates: start: 20100401
  3. VENTOLIN [Suspect]
     Indication: WHEEZING
     Dates: start: 20100401

REACTIONS (1)
  - PRESYNCOPE [None]
